FAERS Safety Report 8107558-X (Version None)
Quarter: 2012Q1

REPORT INFORMATION
  Report Type: 
  Country: None (occurrence: None)
  Receive Date: 20120202
  Receipt Date: 20120120
  Transmission Date: 20120608
  Serious: Yes (Hospitalization)
  Sender: FDA-Public Use
  Company Number: JP-ROCHE-1033828

PATIENT
  Sex: Female
  Weight: 51 kg

DRUGS (14)
  1. MOHRUS TAPE [Concomitant]
     Indication: RHEUMATOID ARTHRITIS
     Route: 061
  2. KETOPROFEN [Concomitant]
     Indication: RHEUMATOID ARTHRITIS
     Route: 061
  3. ACTEMRA [Suspect]
     Route: 041
     Dates: start: 20110913, end: 20111115
  4. METHOTREXATE [Concomitant]
     Indication: RHEUMATOID ARTHRITIS
     Route: 048
     Dates: end: 20110713
  5. PREDNISOLONE [Concomitant]
     Indication: RHEUMATOID ARTHRITIS
     Route: 048
  6. TALION (JAPAN) [Concomitant]
     Dosage: WHEN ADMINISTERING ACTEMRA
     Route: 048
     Dates: start: 20110525, end: 20111115
  7. BAZEDOXIFENE ACETATE [Concomitant]
     Indication: OSTEOPOROSIS
     Route: 048
     Dates: start: 20110713
  8. ACTEMRA [Suspect]
     Indication: RHEUMATOID ARTHRITIS
     Route: 041
     Dates: start: 20110426, end: 20110621
  9. GASLON N [Concomitant]
     Route: 048
  10. ACETAMINOPHEN [Concomitant]
     Dosage: WHEN ADMINISTERING ACTEMRA
     Route: 048
     Dates: start: 20110525, end: 20111115
  11. INFLUENZA HA VACCINE [Concomitant]
     Indication: ANTIVIRAL PROPHYLAXIS
     Dosage: DOSAGE IS UNCERTAIN.
     Route: 058
     Dates: start: 20111101, end: 20111101
  12. MUCOSOLVAN [Concomitant]
     Route: 048
  13. ALENDRONATE SODIUM [Concomitant]
     Indication: OSTEOPOROSIS
     Route: 048
     Dates: end: 20110712
  14. ONEALFA [Concomitant]
     Route: 048
     Dates: end: 20110713

REACTIONS (2)
  - NEUROGENIC BLADDER [None]
  - INFECTED DERMAL CYST [None]
